FAERS Safety Report 10219926 (Version 3)
Quarter: 2014Q2

REPORT INFORMATION
  Report Type: Spontaneous
  Country: JP (occurrence: JP)
  Receive Date: 20140605
  Receipt Date: 20140611
  Transmission Date: 20141212
  Serious: No
  Sender: FDA-Public Use
  Company Number: JP-ELI_LILLY_AND_COMPANY-JP201405007133

PATIENT
  Age: 83 Year
  Sex: Female

DRUGS (5)
  1. FORTEO [Suspect]
     Indication: OSTEOPOROSIS
     Dosage: UNK
     Route: 058
     Dates: end: 20140515
  2. BAYASPIRIN [Concomitant]
     Dosage: UNK
  3. MICARDIS [Concomitant]
     Dosage: UNK
  4. MAINTATE [Concomitant]
     Dosage: UNK
  5. MYSLEE [Concomitant]
     Dosage: UNK

REACTIONS (1)
  - Pyrexia [Recovered/Resolved]
